FAERS Safety Report 4332356-2 (Version None)
Quarter: 2004Q2

REPORT INFORMATION
  Report Type: 
  Country: None (occurrence: None)
  Receive Date: 20040401
  Receipt Date: 20040322
  Transmission Date: 20050107
  Serious: Yes (Hospitalization)
  Sender: FDA-Public Use
  Company Number: GB-JNJFOC-20040304770

PATIENT
  Age: 59 Year
  Sex: Female

DRUGS (8)
  1. REMICADE [Suspect]
     Indication: RHEUMATOID ARTHRITIS
     Dosage: INTRAVENOUS
     Route: 042
     Dates: start: 20020901, end: 20020901
  2. PREDNISOLONE [Concomitant]
  3. FLUOXETINE [Concomitant]
  4. LANSOPRAZOLE [Concomitant]
  5. KETOCID (KETOPROFEN) [Concomitant]
  6. PREMPAK C (PREMPAK / OLD FORM/) [Concomitant]
  7. CO-DYDRAMOL (PARAMOL-118) [Concomitant]
  8. ZIMOVANE (ZOPICLONE) [Concomitant]

REACTIONS (1)
  - SCIATICA [None]
